FAERS Safety Report 6239155-5 (Version None)
Quarter: 2009Q2

REPORT INFORMATION
  Report Type: 
  Country: None (occurrence: None)
  Receive Date: 20090622
  Receipt Date: 20090616
  Transmission Date: 20091009
  Serious: Yes (Death)
  Sender: FDA-Public Use
  Company Number: US-GILEAD-2009-0022630

PATIENT

DRUGS (8)
  1. LETAIRIS [Suspect]
     Indication: PULMONARY ARTERIAL HYPERTENSION
     Route: 048
     Dates: start: 20081017, end: 20090526
  2. AMLODIPINE [Concomitant]
  3. FUROSEMIDE [Concomitant]
  4. DILTIAZEM CD [Concomitant]
  5. DIGOXIN [Concomitant]
  6. KLOR-CON [Concomitant]
  7. MISOPROSTOL [Concomitant]
  8. NEXIUM [Concomitant]

REACTIONS (1)
  - DEATH [None]
